FAERS Safety Report 25311401 (Version 1)
Quarter: 2025Q2

REPORT INFORMATION
  Report Type: Spontaneous
  Country: FR (occurrence: FR)
  Receive Date: 20250514
  Receipt Date: 20250514
  Transmission Date: 20250717
  Serious: Yes (Hospitalization)
  Sender: AUROBINDO
  Company Number: FR-AFSSAPS-PA2025000352

PATIENT
  Age: 58 Year
  Sex: Male
  Weight: 50.1 kg

DRUGS (16)
  1. LEVOFLOXACIN [Suspect]
     Active Substance: LEVOFLOXACIN
     Indication: Tuberculosis
     Dosage: 250 MILLIGRAM, EVERY OTHER DAY
     Route: 048
     Dates: start: 20250325
  2. SERTRALINE HYDROCHLORIDE [Suspect]
     Active Substance: SERTRALINE HYDROCHLORIDE
     Indication: Depression
     Dosage: 25 MILLIGRAM, ONCE A DAY
     Route: 048
     Dates: start: 20250228, end: 20250307
  3. SERTRALINE HYDROCHLORIDE [Suspect]
     Active Substance: SERTRALINE HYDROCHLORIDE
     Dosage: 50 MILLIGRAM, ONCE A DAY
     Route: 048
     Dates: start: 20250308
  4. ETHAMBUTOL HYDROCHLORIDE [Suspect]
     Active Substance: ETHAMBUTOL HYDROCHLORIDE
     Indication: Tuberculosis
     Dosage: 1500 MILLIGRAM, EVERY OTHER DAY
     Route: 048
     Dates: start: 20241225, end: 20250227
  5. MYAMBUTOL [Suspect]
     Active Substance: ETHAMBUTOL HYDROCHLORIDE
     Indication: Tuberculosis
     Route: 042
     Dates: start: 20250302, end: 20250302
  6. MYAMBUTOL [Suspect]
     Active Substance: ETHAMBUTOL HYDROCHLORIDE
     Dosage: 1500 MILLIGRAM, EVERY OTHER DAY
     Route: 042
     Dates: start: 20250305, end: 20250321
  7. RIFAMPIN [Suspect]
     Active Substance: RIFAMPIN
     Indication: Tuberculosis
     Dosage: 600 MILLIGRAM, ONCE A DAY
     Dates: start: 20250201, end: 20250228
  8. RIFAMPIN [Suspect]
     Active Substance: RIFAMPIN
     Dosage: 600 MILLIGRAM, ONCE A DAY
     Route: 048
     Dates: start: 20250326
  9. RIFAMPIN [Suspect]
     Active Substance: RIFAMPIN
     Indication: Tuberculosis
     Dosage: 300 MILLIGRAM, ONCE A DAY
     Route: 042
     Dates: start: 20250301, end: 20250302
  10. RIFAMPIN [Suspect]
     Active Substance: RIFAMPIN
     Dosage: 600 MILLIGRAM, ONCE A DAY
     Route: 042
     Dates: start: 20250303, end: 20250325
  11. LEVOFLOXACIN [Suspect]
     Active Substance: LEVOFLOXACIN
     Indication: Tuberculosis
     Dosage: 250 MILLIGRAM, EVERY OTHER DAY
     Route: 048
     Dates: start: 20250305, end: 20250323
  12. RIMIFON [Suspect]
     Active Substance: ISONIAZID
     Indication: Tuberculosis
     Dosage: 200 MILLIGRAM, ONCE A DAY
     Route: 048
     Dates: start: 20241224, end: 20250212
  13. RIMIFON [Suspect]
     Active Substance: ISONIAZID
     Dosage: 150 MILLIGRAM, ONCE A DAY
     Route: 048
     Dates: start: 20250213, end: 20250228
  14. RIMIFON [Suspect]
     Active Substance: ISONIAZID
     Dosage: 150 MILLIGRAM, ONCE A DAY
     Route: 042
     Dates: start: 20250301, end: 20250303
  15. RIMIFON [Suspect]
     Active Substance: ISONIAZID
     Dosage: 200 MILLIGRAM, ONCE A DAY
     Route: 042
     Dates: start: 20250304, end: 20250325
  16. RIMIFON [Suspect]
     Active Substance: ISONIAZID
     Dosage: 200 MILLIGRAM, ONCE A DAY
     Route: 048
     Dates: start: 20250326

REACTIONS (3)
  - Dyschromatopsia [Not Recovered/Not Resolved]
  - Vision blurred [Not Recovered/Not Resolved]
  - Vomiting [Recovering/Resolving]

NARRATIVE: CASE EVENT DATE: 20250306
